FAERS Safety Report 13337437 (Version 1)
Quarter: 2017Q1

REPORT INFORMATION
  Report Type: Spontaneous
  Country: US (occurrence: US)
  Receive Date: 20170315
  Receipt Date: 20170315
  Transmission Date: 20170428
  Serious: No
  Sender: FDA-Public Use
  Company Number: None

PATIENT
  Age: 60 Year
  Sex: Female
  Weight: 65.7 kg

DRUGS (14)
  1. REFRESH [Concomitant]
     Active Substance: UNSPECIFIED INGREDIENT
  2. METFORMIN HCL [Suspect]
     Active Substance: METFORMIN HYDROCHLORIDE
     Indication: GLUCOSE TOLERANCE IMPAIRED
     Dosage: ?          QUANTITY:30 TABLET(S);?
     Route: 048
     Dates: start: 20170308, end: 20170312
  3. NEURONTIN [Concomitant]
     Active Substance: GABAPENTIN
  4. SINGULAIR [Concomitant]
     Active Substance: MONTELUKAST SODIUM
  5. ZYRTEC [Concomitant]
     Active Substance: CETIRIZINE HYDROCHLORIDE
  6. LUNESTA [Concomitant]
     Active Substance: ESZOPICLONE
  7. MOBIC [Concomitant]
     Active Substance: MELOXICAM
  8. NASACORT [Concomitant]
     Active Substance: TRIAMCINOLONE ACETONIDE
  9. ZADITOR [Concomitant]
     Active Substance: KETOTIFEN FUMARATE
  10. AVAPRO [Concomitant]
     Active Substance: IRBESARTAN
  11. VITAMIN D3 [Concomitant]
     Active Substance: CHOLECALCIFEROL
  12. LIPITOR [Concomitant]
     Active Substance: ATORVASTATIN CALCIUM
  13. ONE-A-DAY MULTIVITAMIN [Concomitant]
  14. GLUCOSAMINE/CHONDROITIN/MSM [Concomitant]

REACTIONS (5)
  - Glossodynia [None]
  - Product substitution issue [None]
  - Oral discomfort [None]
  - Oropharyngeal pain [None]
  - Dysgeusia [None]

NARRATIVE: CASE EVENT DATE: 20170308
